FAERS Safety Report 13472339 (Version 2)
Quarter: 2017Q2

REPORT INFORMATION
  Report Type: Spontaneous
  Country: US (occurrence: US)
  Receive Date: 20170424
  Receipt Date: 20170602
  Transmission Date: 20170830
  Serious: Yes (Other)
  Sender: FDA-Public Use
  Company Number: US-GLAXOSMITHKLINE-US2017058188

PATIENT
  Sex: Female
  Weight: 92.52 kg

DRUGS (1)
  1. CARVEDILOL. [Suspect]
     Active Substance: CARVEDILOL
     Dosage: 25 MG, BID
     Route: 048
     Dates: start: 20140715, end: 20170412

REACTIONS (4)
  - Fatigue [Unknown]
  - Abasia [Unknown]
  - Arthralgia [Unknown]
  - Peripheral coldness [Unknown]
